FAERS Safety Report 17039933 (Version 1)
Quarter: 2019Q4

REPORT INFORMATION
  Report Type: Report from Study
  Country: None (occurrence: AR)
  Receive Date: 20191116
  Receipt Date: 20191116
  Transmission Date: 20200122
  Serious: Yes (Death, Life-Threatening, Hospitalization, Other)
  Sender: FDA-Public Use
  Company Number: AR-ABBVIE-19K-007-2998911-00

PATIENT
  Age: 55 Year
  Sex: Female

DRUGS (1)
  1. HUMIRA [Suspect]
     Active Substance: ADALIMUMAB
     Indication: ANKYLOSING SPONDYLITIS
     Route: 058
     Dates: start: 20180403

REACTIONS (11)
  - Therapeutic response unexpected [Unknown]
  - Cardiac disorder [Unknown]
  - Renal failure [Unknown]
  - Lung disorder [Unknown]
  - Pre-existing condition improved [Unknown]
  - Cardio-respiratory arrest [Unknown]
  - Hypophagia [Unknown]
  - Anaemia [Unknown]
  - Abdominal pain upper [Unknown]
  - Vomiting [Unknown]
  - Death [Fatal]

NARRATIVE: CASE EVENT DATE: 20191110
